FAERS Safety Report 9578334 (Version 1)
Quarter: 2013Q4

REPORT INFORMATION
  Report Type: Spontaneous
  Country: US (occurrence: US)
  Receive Date: 20131001
  Receipt Date: 20131001
  Transmission Date: 20140711
  Serious: No
  Sender: FDA-Public Use
  Company Number: US-AMGEN-USASP2013013165

PATIENT
  Sex: Female
  Weight: 117.46 kg

DRUGS (10)
  1. ENBREL [Suspect]
     Indication: RHEUMATOID ARTHRITIS
     Dosage: 50 MG, INJECT AS DIRECTED BY PHYSICIAN
     Dates: end: 2008
  2. TRIBENZOR [Concomitant]
     Dosage: 5-12.5 MG, UNK
  3. METHOTREXATE [Concomitant]
     Dosage: 2.5 MG, UNK
  4. SYNTHROID [Concomitant]
     Dosage: 100 MUG, UNK
  5. EFFEXOR [Concomitant]
     Dosage: 37.5 MG, UNK
  6. PRILOSEC                           /00661201/ [Concomitant]
     Dosage: 40 MG, UNK
  7. TRAZODONE [Concomitant]
     Dosage: 100 MG, UNK
  8. MULTIVITAMINS, PLAIN [Concomitant]
     Dosage: UNK
  9. FISH OIL [Concomitant]
     Dosage: UNK
  10. FIBER [Concomitant]
     Dosage: UNK

REACTIONS (1)
  - Therapeutic response decreased [Unknown]
